FAERS Safety Report 5338735-9 (Version None)
Quarter: 2007Q2

REPORT INFORMATION
  Report Type: 
  Country: None (occurrence: None)
  Receive Date: 20070530
  Receipt Date: 20070517
  Transmission Date: 20071010
  Serious: Yes (Hospitalization)
  Sender: FDA-Public Use
  Company Number: JP-ELI_LILLY_AND_COMPANY-JP200603002261

PATIENT
  Age: 53 Year
  Sex: Female

DRUGS (2)
  1. SULFASALAZINE [Concomitant]
     Dates: start: 20030801, end: 20040101
  2. EVISTA [Suspect]
     Indication: OSTEOPOROSIS
     Dosage: 60 MG, DAILY (1/D)
     Route: 048
     Dates: start: 20040913, end: 20041201

REACTIONS (1)
  - HEPATIC STEATOSIS [None]
